FAERS Safety Report 13894909 (Version 2)
Quarter: 2017Q3

REPORT INFORMATION
  Report Type: Spontaneous
  Country: AU (occurrence: AU)
  Receive Date: 20170823
  Receipt Date: 20170830
  Transmission Date: 20171127
  Serious: Yes (Death, Hospitalization)
  Sender: FDA-Public Use
  Company Number: AU-ACTELION-A-CH2017-158143

PATIENT
  Age: 69 Year
  Sex: Female
  Weight: 82.9 kg

DRUGS (19)
  1. OPSUMIT [Suspect]
     Active Substance: MACITENTAN
     Indication: PULMONARY ARTERIAL HYPERTENSION
     Dosage: 10 MG, UNK
     Route: 048
     Dates: start: 20151010
  2. KARVEZIDE [Concomitant]
     Active Substance: HYDROCHLOROTHIAZIDE\IRBESARTAN
  3. TADALAFIL [Suspect]
     Active Substance: TADALAFIL
     Indication: PULMONARY ARTERIAL HYPERTENSION
     Dosage: 40 MG, UNK
     Route: 048
     Dates: start: 20131105
  4. SYMBICORT [Concomitant]
     Active Substance: BUDESONIDE\FORMOTEROL FUMARATE DIHYDRATE
  5. PREDNISONE. [Concomitant]
     Active Substance: PREDNISONE
     Indication: PULMONARY ARTERIAL HYPERTENSION
     Dosage: 5 MG, UNK
  6. LOVAN [Concomitant]
     Active Substance: FLUOXETINE HYDROCHLORIDE
  7. PARIET [Concomitant]
     Active Substance: RABEPRAZOLE SODIUM
  8. PLAVIX [Concomitant]
     Active Substance: CLOPIDOGREL BISULFATE
     Indication: CARDIOVASCULAR DISORDER
  9. MIRALAX [Concomitant]
     Active Substance: POLYETHYLENE GLYCOL 3350
  10. FOLATE [Concomitant]
     Active Substance: FOLATE SODIUM
  11. METHOTREXATE. [Concomitant]
     Active Substance: METHOTREXATE
     Dosage: 7.5 MG, UNK
  12. ACTONEL PLUS CALCIUM D [Concomitant]
     Indication: OSTEOPOROSIS
  13. SPIRIVA [Concomitant]
     Active Substance: TIOTROPIUM BROMIDE MONOHYDRATE
  14. OMNARIS [Concomitant]
     Active Substance: CICLESONIDE
  15. NORSPAN [Concomitant]
     Active Substance: BUPRENORPHINE
     Route: 061
  16. CRESTOR [Concomitant]
     Active Substance: ROSUVASTATIN CALCIUM
  17. CLOPIDOGREL [Concomitant]
     Active Substance: CLOPIDOGREL BISULFATE
  18. VITAMIN D [Concomitant]
     Active Substance: CHOLECALCIFEROL
  19. HIPREX [Concomitant]
     Active Substance: METHENAMINE HIPPURATE

REACTIONS (3)
  - Pneumonia [Fatal]
  - Oxygen saturation decreased [Fatal]
  - Body temperature increased [Fatal]

NARRATIVE: CASE EVENT DATE: 20170803
